FAERS Safety Report 8939129 (Version 2)
Quarter: 2012Q4

REPORT INFORMATION
  Report Type: 
  Country: US (occurrence: US)
  Receive Date: 20121121
  Receipt Date: 20121212
  Transmission Date: 20130627
  Serious: Yes (Death)
  Sender: FDA-Public Use
  Company Number: US-ASTELLAS-1110425

PATIENT
  Sex: Female

DRUGS (1)
  1. TARCEVA [Suspect]
     Indication: LUNG CANCER METASTATIC
     Route: 048
     Dates: start: 20100526, end: 20100616

REACTIONS (4)
  - Lung cancer metastatic [Fatal]
  - Diarrhoea [Unknown]
  - Dermatitis [Unknown]
  - Mucosal inflammation [Unknown]
